FAERS Safety Report 7610823-3 (Version None)
Quarter: 2011Q3

REPORT INFORMATION
  Report Type: 
  Country: None (occurrence: None)
  Receive Date: 20110715
  Receipt Date: 20110705
  Transmission Date: 20111222
  Serious: Yes (Hospitalization, Other)
  Sender: FDA-Public Use
  Company Number: CH-US-EMD SERONO, INC.-7039696

PATIENT
  Sex: Female
  Weight: 57 kg

DRUGS (7)
  1. REBIF [Suspect]
     Indication: RELAPSING-REMITTING MULTIPLE SCLEROSIS
     Route: 058
  2. VENTOLIN HFA [Concomitant]
     Indication: DYSPNOEA
  3. NOVALGIN [Concomitant]
     Indication: BACK PAIN
     Route: 048
     Dates: start: 20100101
  4. SPIRIVA [Concomitant]
  5. SPIRICORT [Concomitant]
  6. PANTOPRAZOLE [Concomitant]
     Indication: ABDOMINAL DISCOMFORT
     Route: 048
  7. RESSOURCE [Concomitant]

REACTIONS (16)
  - THROMBOCYTOPENIA [None]
  - PYREXIA [None]
  - CHRONIC OBSTRUCTIVE PULMONARY DISEASE [None]
  - PNEUMONIA [None]
  - BLAST CELLS [None]
  - MORAXELLA INFECTION [None]
  - OSTEOPOROSIS [None]
  - GASTROOESOPHAGEAL REFLUX DISEASE [None]
  - DUODENITIS [None]
  - ADNEXA UTERI MASS [None]
  - GASTRITIS EROSIVE [None]
  - COR PULMONALE [None]
  - HEPATIC LESION [None]
  - LEUKOCYTOSIS [None]
  - WEIGHT DECREASED [None]
  - TELANGIECTASIA [None]
